FAERS Safety Report 9517309 (Version 2)
Quarter: 2014Q1

REPORT INFORMATION
  Report Type: Spontaneous
  Country: US (occurrence: None)
  Receive Date: 20130305
  Receipt Date: 20140306
  Transmission Date: 20141002
  Serious: Yes (Hospitalization)
  Sender: FDA-Public Use
  Company Number: 163-21880-12122048

PATIENT
  Age: 60 Year
  Sex: Male

DRUGS (16)
  1. REVLIMID ( LENALIDOMIDE) ( 25 MILLIGRAM, CAPSULES) [Suspect]
     Indication: PLASMA CELL MYELOMA
     Dosage: 21 IN 28 DAYS
     Route: 048
     Dates: start: 201005
  2. VELCADE (BORTEZOMIB) [Concomitant]
  3. DEXAMETHASONE [Concomitant]
  4. ASPIRIN [Concomitant]
  5. BACTRIM [Concomitant]
  6. OXYCONTIN (OXYCODONE HYDROCHLORIDE) [Concomitant]
  7. ACYCLOVIR (ACICLOVIR) (ACICLOVIR) [Concomitant]
  8. GABAPENTIN [Concomitant]
  9. CALCIUM + VITAMIN D (LEKOVIT CA) [Concomitant]
  10. FOLIC ACID [Concomitant]
  11. MULTIVITAMINS [Concomitant]
  12. NORVASC (AMLODIPINE BESILATE) [Concomitant]
  13. OMEPRAZOLE [Concomitant]
  14. VITAMIN C (ASCORBIC ACID) [Concomitant]
  15. VITAMIN B12 (CYANOCOBALAMIN) [Concomitant]
  16. ASA (ACETYLSALICYLIC ACID) [Concomitant]

REACTIONS (2)
  - Thrombosis [None]
  - Deep vein thrombosis [None]
